FAERS Safety Report 25669108 (Version 1)
Quarter: 2025Q3

REPORT INFORMATION
  Report Type: Spontaneous
  Country: US (occurrence: US)
  Receive Date: 20250812
  Receipt Date: 20250812
  Transmission Date: 20251020
  Serious: Yes (Life-Threatening, Hospitalization, Other)
  Sender: RANBAXY
  Company Number: US-SUN PHARMACEUTICAL INDUSTRIES LTD-2025R1-521673

PATIENT
  Age: 18 Year
  Sex: Female

DRUGS (4)
  1. EPINEPHRINE [Suspect]
     Active Substance: EPINEPHRINE
     Indication: Anaphylactoid syndrome of pregnancy
     Route: 065
  2. NOREPINEPHRINE BITARTRATE [Suspect]
     Active Substance: NOREPINEPHRINE BITARTRATE
     Indication: Anaphylactoid syndrome of pregnancy
     Route: 065
  3. MILRINONE [Suspect]
     Active Substance: MILRINONE
     Indication: Anaphylactoid syndrome of pregnancy
     Route: 065
  4. PHENYLEPHRINE [Suspect]
     Active Substance: PHENYLEPHRINE
     Indication: Anaphylactoid syndrome of pregnancy
     Route: 065

REACTIONS (1)
  - Condition aggravated [Unknown]
